FAERS Safety Report 24951559 (Version 1)
Quarter: 2025Q1

REPORT INFORMATION
  Report Type: Spontaneous
  Country: US (occurrence: US)
  Receive Date: 20250210
  Receipt Date: 20250210
  Transmission Date: 20250409
  Serious: No
  Sender: INTRA-CELLULAR THERAPIES
  Company Number: US-INTRA-CELLULAR THERAPIES, INC.-2024ICT01842

PATIENT
  Sex: Female

DRUGS (4)
  1. CAPLYTA [Suspect]
     Active Substance: LUMATEPERONE
  2. CLOZAPINE [Concomitant]
     Active Substance: CLOZAPINE
  3. RISPERIDONE [Concomitant]
     Active Substance: RISPERIDONE
  4. ATIVAN [Concomitant]
     Active Substance: LORAZEPAM

REACTIONS (1)
  - Agitation [Unknown]
